FAERS Safety Report 14772912 (Version 1)
Quarter: 2018Q2

REPORT INFORMATION
  Report Type: Spontaneous
  Country: US (occurrence: US)
  Receive Date: 20180418
  Receipt Date: 20180418
  Transmission Date: 20180711
  Serious: No
  Sender: FDA-Public Use
  Company Number: US-PFIZER INC-2018159017

PATIENT
  Age: 44 Year
  Sex: Male
  Weight: 158.8 kg

DRUGS (1)
  1. GABAPENTIN. [Suspect]
     Active Substance: GABAPENTIN
     Indication: DIABETIC NEUROPATHY
     Dosage: 300MG CAPSULE EVERY 8 HOURS BY MOUTH
     Route: 048

REACTIONS (1)
  - Drug ineffective for unapproved indication [Not Recovered/Not Resolved]
